FAERS Safety Report 10452749 (Version 2)
Quarter: 2014Q4

REPORT INFORMATION
  Report Type: Report from Study
  Country: ES (occurrence: ES)
  Receive Date: 20140915
  Receipt Date: 20141010
  Transmission Date: 20150528
  Serious: No
  Sender: FDA-Public Use
  Company Number: ES-SA-2014SA125270

PATIENT
  Sex: Male

DRUGS (10)
  1. IRINOTECAN [Suspect]
     Active Substance: IRINOTECAN
     Indication: COLORECTAL CANCER METASTATIC
     Route: 041
     Dates: start: 20140704, end: 20140704
  2. AFLIBERCEPT [Suspect]
     Active Substance: AFLIBERCEPT
     Indication: COLORECTAL CANCER METASTATIC
     Route: 041
     Dates: start: 20140704, end: 20140704
  3. 5-FU [Suspect]
     Active Substance: FLUOROURACIL
     Indication: COLORECTAL CANCER METASTATIC
     Route: 040
     Dates: start: 20140704, end: 20140704
  4. LEUCOVORIN [Suspect]
     Active Substance: LEUCOVORIN
     Indication: COLORECTAL CANCER METASTATIC
     Route: 041
     Dates: start: 20140704, end: 20140704
  5. 5-FU [Suspect]
     Active Substance: FLUOROURACIL
     Indication: COLORECTAL CANCER METASTATIC
     Route: 042
     Dates: start: 20140704
  6. MIRTAZAPINE. [Concomitant]
     Active Substance: MIRTAZAPINE
     Dates: start: 201405
  7. ANALGESICS [Concomitant]
     Active Substance: UNSPECIFIED INGREDIENT
     Dates: start: 201405
  8. ANALGESICS [Concomitant]
     Active Substance: UNSPECIFIED INGREDIENT
     Dates: start: 201405
  9. DUTASTERIDE/TAMSULOSIN [Concomitant]
     Dates: start: 201307
  10. HEPARIN [Concomitant]
     Active Substance: HEPARIN SODIUM
     Dates: start: 201404

REACTIONS (1)
  - Diarrhoea [Unknown]

NARRATIVE: CASE EVENT DATE: 20140715
